FAERS Safety Report 15108353 (Version 2)
Quarter: 2018Q3

REPORT INFORMATION
  Report Type: Report from Study
  Country: None (occurrence: US)
  Receive Date: 20180705
  Receipt Date: 20180713
  Transmission Date: 20181010
  Serious: Yes (Hospitalization)
  Sender: FDA-Public Use
  Company Number: US-ABBVIE-18K-163-2376117-00

PATIENT
  Age: 61 Year
  Sex: Female

DRUGS (2)
  1. HUMIRA [Suspect]
     Active Substance: ADALIMUMAB
     Route: 058
     Dates: start: 20180529, end: 20180611
  2. HUMIRA [Suspect]
     Active Substance: ADALIMUMAB
     Indication: RHEUMATOID ARTHRITIS
     Route: 058
     Dates: start: 20180430, end: 20180514

REACTIONS (10)
  - Pruritus generalised [Recovered/Resolved]
  - Pulmonary thrombosis [Not Recovered/Not Resolved]
  - Injection site pain [Unknown]
  - Eye pruritus [Unknown]
  - Fatigue [Unknown]
  - Pain [Unknown]
  - Ocular hyperaemia [Unknown]
  - Eye infection [Recovered/Resolved]
  - Fall [Unknown]
  - Arthralgia [Not Recovered/Not Resolved]

NARRATIVE: CASE EVENT DATE: 2018
